FAERS Safety Report 9414891 (Version 1)
Quarter: 2013Q3

REPORT INFORMATION
  Report Type: Report from Study
  Country: CA (occurrence: CA)
  Receive Date: 20130723
  Receipt Date: 20130723
  Transmission Date: 20140515
  Serious: No
  Sender: FDA-Public Use
  Company Number: CA-JNJFOC-20130710449

PATIENT
  Sex: Male
  Weight: 73 kg

DRUGS (1)
  1. REMICADE [Suspect]
     Indication: PRODUCT USED FOR UNKNOWN INDICATION
     Dosage: ONCE EVERY 8 (UNSPECIFIED INTERVAL)
     Route: 042
     Dates: start: 20080602, end: 20130509

REACTIONS (1)
  - Tooth abscess [Unknown]
